FAERS Safety Report 14672368 (Version 2)
Quarter: 2018Q4

REPORT INFORMATION
  Report Type: Spontaneous
  Country: FR (occurrence: FR)
  Receive Date: 20180323
  Receipt Date: 20181026
  Transmission Date: 20190204
  Serious: Yes (Other)
  Sender: FDA-Public Use
  Company Number: FR-MERCK KGAA-2044383

PATIENT
  Age: 41 Year
  Sex: Female

DRUGS (2)
  1. EUTHYROX [Suspect]
     Active Substance: LEVOTHYROXINE SODIUM
     Indication: POST PROCEDURAL HYPOTHYROIDISM
  2. LEVOTHYROX NF [Suspect]
     Active Substance: LEVOTHYROXINE SODIUM
     Dates: start: 201709

REACTIONS (26)
  - Lymphocyte count decreased [Recovered/Resolved]
  - Haemoglobin decreased [Recovered/Resolved]
  - Loss of personal independence in daily activities [None]
  - Gait disturbance [None]
  - Alopecia [None]
  - Asthenia [None]
  - White blood cell count decreased [None]
  - Muscle spasms [None]
  - Neutrophil count decreased [None]
  - Haematocrit decreased [Recovered/Resolved]
  - Red blood cell count decreased [Recovered/Resolved]
  - Anxiety disorder [None]
  - Irritability [None]
  - Fatigue [None]
  - Malaise [None]
  - Blood chloride decreased [Recovered/Resolved]
  - Nervousness [None]
  - Depression [None]
  - Coital bleeding [None]
  - Blood cholesterol increased [None]
  - Mean cell haemoglobin decreased [None]
  - Serum ferritin decreased [Recovered/Resolved]
  - Vision blurred [None]
  - Blood thyroid stimulating hormone decreased [None]
  - Platelet count increased [Recovered/Resolved]
  - Tremor [None]

NARRATIVE: CASE EVENT DATE: 20170216
